FAERS Safety Report 15497080 (Version 1)
Quarter: 2018Q4

REPORT INFORMATION
  Report Type: Report from Study
  Country: CN (occurrence: CN)
  Receive Date: 20181015
  Receipt Date: 20181015
  Transmission Date: 20190205
  Serious: Yes (Hospitalization, Other)
  Sender: FDA-Public Use
  Company Number: CN-ACCORD-073201

PATIENT
  Age: 3 Year
  Sex: Female

DRUGS (3)
  1. MYCOPHENOLIC ACID. [Suspect]
     Active Substance: MYCOPHENOLIC ACID
     Indication: PROGRESSIVE FAMILIAL INTRAHEPATIC CHOLESTASIS
  2. METHYLPREDNISOLONE. [Suspect]
     Active Substance: METHYLPREDNISOLONE
     Indication: PROGRESSIVE FAMILIAL INTRAHEPATIC CHOLESTASIS
  3. TACROLIMUS. [Suspect]
     Active Substance: TACROLIMUS
     Indication: PROGRESSIVE FAMILIAL INTRAHEPATIC CHOLESTASIS

REACTIONS (2)
  - Lymphadenitis [Recovered/Resolved]
  - Epstein-Barr virus infection [Recovered/Resolved]
